FAERS Safety Report 5793565-9 (Version None)
Quarter: 2008Q2

REPORT INFORMATION
  Report Type: 
  Country: None (occurrence: None)
  Receive Date: 20080627
  Receipt Date: 20070517
  Transmission Date: 20081010
  Serious: No
  Sender: FDA-Public Use
  Company Number: A0651792A

PATIENT
  Sex: Female

DRUGS (7)
  1. ALBUTEROL [Suspect]
     Indication: ASTHMA
     Route: 055
  2. PREDNISONE [Suspect]
  3. SEREVENT [Concomitant]
  4. FLOVENT [Concomitant]
  5. ASPIRIN [Concomitant]
  6. DIOVAN [Concomitant]
  7. ATROVENT [Concomitant]

REACTIONS (5)
  - ASTHENIA [None]
  - BLOOD GLUCOSE INCREASED [None]
  - DRUG INEFFECTIVE [None]
  - DYSPNOEA [None]
  - POLLAKIURIA [None]
